FAERS Safety Report 10232285 (Version 1)
Quarter: 2014Q2

REPORT INFORMATION
  Report Type: Spontaneous
  Country: DE (occurrence: DE)
  Receive Date: 20140612
  Receipt Date: 20140612
  Transmission Date: 20141212
  Serious: Yes (Other)
  Sender: FDA-Public Use
  Company Number: DE-DRREDDYS-GER/GER/14/0040950

PATIENT
  Age: 43 Year
  Sex: Male

DRUGS (11)
  1. OLANZAPINE [Suspect]
     Indication: PRODUCT USED FOR UNKNOWN INDICATION
     Route: 048
     Dates: start: 20120703, end: 20120715
  2. MIRTAZAPINE [Suspect]
     Indication: PRODUCT USED FOR UNKNOWN INDICATION
     Route: 048
     Dates: start: 20120702
  3. MIRTAZAPINE [Suspect]
     Route: 048
     Dates: start: 20120703, end: 20120813
  4. MIRTAZAPINE [Suspect]
     Route: 048
     Dates: start: 20120814, end: 20120826
  5. MIRTAZAPINE [Suspect]
     Route: 048
     Dates: start: 20120827, end: 20120913
  6. MIRTAZAPINE [Suspect]
     Route: 048
     Dates: start: 20120914, end: 20121101
  7. MIRTAZAPINE [Suspect]
     Route: 048
     Dates: start: 20121102, end: 20121106
  8. LORAZEPAM [Concomitant]
     Indication: PRODUCT USED FOR UNKNOWN INDICATION
     Route: 048
     Dates: start: 20120703, end: 20120710
  9. LORAZEPAM [Concomitant]
     Route: 048
     Dates: start: 20120711, end: 20120716
  10. LORAZEPAM [Concomitant]
     Route: 048
     Dates: start: 20120717, end: 20120723
  11. LORAZEPAM [Concomitant]
     Route: 048
     Dates: start: 20120727, end: 20120727

REACTIONS (2)
  - Weight increased [Unknown]
  - Metabolic syndrome [Unknown]
